FAERS Safety Report 8158711-0 (Version None)
Quarter: 2012Q1

REPORT INFORMATION
  Report Type: 
  Country: None (occurrence: None)
  Receive Date: 20120223
  Receipt Date: 20120217
  Transmission Date: 20120608
  Serious: Yes (Death)
  Sender: FDA-Public Use
  Company Number: US-SANOFI-AVENTIS-2012SA006565

PATIENT
  Age: 82 Year
  Sex: Female

DRUGS (16)
  1. CHLORPROMAZINE HCL [Suspect]
     Route: 048
  2. CLOPIDOGREL BISULFATE [Suspect]
     Route: 048
  3. CLOPIDOGREL BISULFATE [Suspect]
     Route: 065
  4. DILTIAZEM HYDROCHLORIDE [Suspect]
     Route: 048
  5. DILTIAZEM HYDROCHLORIDE [Suspect]
     Route: 048
  6. SITAGLIPTIN AND METFORMIN HYDROCHLORIDE [Suspect]
     Route: 048
  7. CHLORPROMAZINE HCL [Suspect]
     Route: 065
  8. CLOPIDOGREL BISULFATE [Suspect]
     Route: 065
  9. SITAGLIPTIN AND METFORMIN HYDROCHLORIDE [Suspect]
     Route: 048
  10. CHLORPROMAZINE HCL [Suspect]
     Route: 065
  11. SITAGLIPTIN AND METFORMIN HYDROCHLORIDE [Suspect]
     Route: 065
  12. CHLORPROMAZINE HCL [Suspect]
     Route: 048
  13. DILTIAZEM HYDROCHLORIDE [Suspect]
     Route: 048
  14. DILTIAZEM HYDROCHLORIDE [Suspect]
     Route: 048
  15. CLOPIDOGREL BISULFATE [Suspect]
     Route: 048
  16. SITAGLIPTIN AND METFORMIN HYDROCHLORIDE [Suspect]
     Route: 065

REACTIONS (2)
  - MULTIPLE DRUG OVERDOSE [None]
  - COMPLETED SUICIDE [None]
